FAERS Safety Report 15622660 (Version 1)
Quarter: 2018Q4

REPORT INFORMATION
  Report Type: Spontaneous
  Country: RU (occurrence: RU)
  Receive Date: 20181115
  Receipt Date: 20181115
  Transmission Date: 20190205
  Serious: Yes (Other)
  Sender: FDA-Public Use
  Company Number: RU-009507513-1810RUS009864

PATIENT
  Age: 49 Year
  Sex: Female

DRUGS (3)
  1. FORXIGA [Suspect]
     Active Substance: DAPAGLIFLOZIN
     Dosage: UNK
  2. JANUVIA [Suspect]
     Active Substance: SITAGLIPTIN PHOSPHATE
     Dosage: UNK
     Route: 048
     Dates: start: 2018
  3. JANUVIA [Suspect]
     Active Substance: SITAGLIPTIN PHOSPHATE
     Indication: TYPE 2 DIABETES MELLITUS
     Dosage: UNK
     Route: 048
     Dates: start: 2014, end: 2018

REACTIONS (6)
  - Condition aggravated [Recovering/Resolving]
  - Poor quality product administered [Unknown]
  - Product taste abnormal [Unknown]
  - Blood pressure increased [Recovering/Resolving]
  - Blood glucose increased [Recovering/Resolving]
  - Diabetic metabolic decompensation [Unknown]

NARRATIVE: CASE EVENT DATE: 2018
